FAERS Safety Report 16406294 (Version 1)
Quarter: 2019Q2

REPORT INFORMATION
  Report Type: Spontaneous
  Country: CA (occurrence: CA)
  Receive Date: 20190607
  Receipt Date: 20190607
  Transmission Date: 20190711
  Serious: Yes (Disabling)
  Sender: FDA-Public Use
  Company Number: CA-PFIZER INC-2019240748

PATIENT
  Age: 79 Year
  Sex: Male
  Weight: 92.97 kg

DRUGS (9)
  1. SENNOSIDES. [Concomitant]
     Active Substance: SENNOSIDES
     Dosage: UNK
  2. GD-LATANOPROST [Suspect]
     Active Substance: LATANOPROST
     Indication: GLAUCOMA
  3. PMS-TRAZODONE [Concomitant]
     Dosage: UNK
  4. GD-LATANOPROST [Suspect]
     Active Substance: LATANOPROST
     Indication: MACULAR DEGENERATION
     Dosage: 2 GTT, 1X/DAY (2 DROPS 1 EVERY 1 DAY)
     Route: 047
  5. JAMP ASA [Concomitant]
     Active Substance: ASPIRIN
     Dosage: UNK
  6. VITALUX ADVANCED CHEWABLE [Concomitant]
     Dosage: UNK
  7. LAXATIVE [BISACODYL] [Concomitant]
     Active Substance: BISACODYL
     Dosage: UNK
  8. SANDOZ RABEPRAZOLE [Concomitant]
     Active Substance: RABEPRAZOLE
     Dosage: UNK
  9. TAMSULOSIN SANDOZ [Concomitant]
     Active Substance: TAMSULOSIN
     Dosage: UNK

REACTIONS (1)
  - Visual impairment [Recovered/Resolved]
